FAERS Safety Report 14262212 (Version 1)
Quarter: 2017Q4

REPORT INFORMATION
  Report Type: Report from Study
  Country: US (occurrence: US)
  Receive Date: 20171208
  Receipt Date: 20171208
  Transmission Date: 20180321
  Serious: No
  Sender: FDA-Public Use
  Company Number: US-KYOWAKIRIN-2017BKK000357

PATIENT

DRUGS (1)
  1. GRANISETRON [Suspect]
     Active Substance: GRANISETRON
     Indication: PROPHYLAXIS OF NAUSEA AND VOMITING
     Dosage: 1 DF ON DAY OF CHEMOTHERAPY, REMOVE 5-7 DAYS LATER
     Route: 062
     Dates: start: 20170206

REACTIONS (3)
  - Product adhesion issue [Unknown]
  - Drug prescribing error [Unknown]
  - Inappropriate schedule of drug administration [Unknown]

NARRATIVE: CASE EVENT DATE: 20170206
